FAERS Safety Report 4542257-2 (Version None)
Quarter: 2004Q4

REPORT INFORMATION
  Report Type: 
  Country: None (occurrence: None)
  Receive Date: 20041227
  Receipt Date: 20041214
  Transmission Date: 20050328
  Serious: Yes (Other)
  Sender: FDA-Public Use
  Company Number: HQWYE645808OCT04

PATIENT
  Age: 45 Year
  Sex: Female

DRUGS (3)
  1. PREMPRO [Suspect]
     Dosage: 0.3MG/1.5MG, ORAL
     Route: 048
  2. PREMARIN [Suspect]
     Dosage: 0.3 MG, ORAL
     Route: 048
  3. MULTIVITAMINS (ASCORBIC ACID/ERGOCALCIFEROL/FOLIC ACID/NICOTINAMIDE/PA [Concomitant]

REACTIONS (5)
  - BREAST CANCER METASTATIC [None]
  - BREAST CANCER STAGE III [None]
  - FIBROCYSTIC BREAST DISEASE [None]
  - OESTROGEN RECEPTOR ASSAY POSITIVE [None]
  - PROGESTERONE RECEPTOR ASSAY POSITIVE [None]
